FAERS Safety Report 4636399-0 (Version None)
Quarter: 2005Q2

REPORT INFORMATION
  Report Type: 
  Country: None (occurrence: None)
  Receive Date: 20050415
  Receipt Date: 20050404
  Transmission Date: 20051028
  Serious: Yes (Other)
  Sender: FDA-Public Use
  Company Number: NL-JNJFOC-20050306678

PATIENT
  Sex: Female

DRUGS (3)
  1. REMINYL [Suspect]
     Route: 065
  2. REMINYL [Suspect]
     Indication: DRUG USE FOR UNKNOWN INDICATION
     Route: 065
  3. CITALOPRAM HYDROBROMIDE [Interacting]
     Indication: DEPRESSION
     Route: 065

REACTIONS (5)
  - ANHEDONIA [None]
  - DECREASED APPETITE [None]
  - DRUG INTERACTION [None]
  - MAJOR DEPRESSION [None]
  - MORBID THOUGHTS [None]
